APPROVED DRUG PRODUCT: DEXMETHYLPHENIDATE HYDROCHLORIDE
Active Ingredient: DEXMETHYLPHENIDATE HYDROCHLORIDE
Strength: 35MG
Dosage Form/Route: CAPSULE, EXTENDED RELEASE;ORAL
Application: A204266 | Product #006
Applicant: AUROLIFE PHARMA LLC
Approved: May 4, 2021 | RLD: No | RS: No | Type: DISCN